FAERS Safety Report 7549764-9 (Version None)
Quarter: 2011Q2

REPORT INFORMATION
  Report Type: 
  Country: None (occurrence: None)
  Receive Date: 20110615
  Receipt Date: 20060104
  Transmission Date: 20111010
  Serious: Yes (Hospitalization, Other)
  Sender: FDA-Public Use
  Company Number: PHFR2005GB03722

PATIENT
  Sex: Male

DRUGS (4)
  1. CLOZAPINE [Suspect]
     Indication: SCHIZOPHRENIA
     Dosage: 50MG X2 DAILY/ 200MG/NIGHT
     Route: 048
     Dates: start: 20041219
  2. HYOSCINE [Concomitant]
     Indication: SALIVARY HYPERSECRETION
     Dosage: 20 MG, QD
     Route: 048
     Dates: start: 20050601
  3. IMIPRAMINE [Concomitant]
     Dosage: 2X 25MG / MORNING
     Route: 048
  4. DIAZEPAM [Concomitant]
     Indication: AGITATION
     Dosage: 5MG AM/ 10MG AT 5PM/10PM
     Route: 048

REACTIONS (4)
  - PLATELET COUNT INCREASED [None]
  - HAEMOGLOBIN DECREASED [None]
  - LUNG ABSCESS [None]
  - EMPYEMA [None]
